FAERS Safety Report 20131204 (Version 1)
Quarter: 2021Q4

REPORT INFORMATION
  Report Type: Spontaneous
  Country: US (occurrence: US)
  Receive Date: 20211130
  Receipt Date: 20211130
  Transmission Date: 20220304
  Serious: No
  Sender: FDA-Public Use
  Company Number: US-PFIZER INC-2021508515

PATIENT
  Age: 57 Year
  Sex: Female

DRUGS (1)
  1. PREMARIN [Suspect]
     Active Substance: ESTROGENS, CONJUGATED
     Dosage: 0.5 G [INSERT 1/2 A GRAM 3X A WEEK]

REACTIONS (6)
  - Nephropathy [Unknown]
  - Chronic obstructive pulmonary disease [Unknown]
  - Asthma [Unknown]
  - Osteoporosis [Unknown]
  - Arthritis [Unknown]
  - Off label use [Unknown]
